FAERS Safety Report 8615825-6 (Version None)
Quarter: 2012Q3

REPORT INFORMATION
  Report Type: 
  Country: None (occurrence: None)
  Receive Date: 20120823
  Receipt Date: 20120821
  Transmission Date: 20120928
  Serious: Yes (Death, Other)
  Sender: FDA-Public Use
  Company Number: PHHY2012MX072782

PATIENT
  Sex: Female

DRUGS (3)
  1. ACETYLSALICYLIC ACID SRT [Concomitant]
     Dosage: 1 DF DAILY
  2. VALSARTAN/HYDROCHLOROTHIAZIDE [Suspect]
     Indication: HYPERTENSION
     Dosage: 1 DF (80/12.5MG), QD
     Dates: start: 20111001
  3. METFORMIN [Concomitant]
     Indication: DIABETES MELLITUS
     Dosage: 1.5 DF DAILY

REACTIONS (3)
  - FALL [None]
  - FACE INJURY [None]
  - CEREBRAL THROMBOSIS [None]
